FAERS Safety Report 4356416-5 (Version None)
Quarter: 2004Q2

REPORT INFORMATION
  Report Type: 
  Country: None (occurrence: None)
  Receive Date: 20040510
  Receipt Date: 20040510
  Transmission Date: 20050107
  Serious: Yes (Hospitalization, Other)
  Sender: FDA-Public Use
  Company Number: None

PATIENT
  Age: 75 Year
  Sex: Male
  Weight: 118 kg

DRUGS (5)
  1. INTEGRILIN [Suspect]
     Indication: ANTIPLATELET THERAPY
     Dosage: 2 (10.7 ML BOLUSES) 19ML/HR IV
     Route: 042
     Dates: start: 20040428, end: 20040429
  2. NITROGLYCERIN [Concomitant]
  3. ASPIRIN [Concomitant]
  4. CLOPIDOGREL BISULFATE [Concomitant]
  5. PEPCID [Concomitant]

REACTIONS (1)
  - POST PROCEDURAL HAEMORRHAGE [None]
